FAERS Safety Report 17193582 (Version 1)
Quarter: 2019Q4

REPORT INFORMATION
  Report Type: Spontaneous
  Country: MX (occurrence: MX)
  Receive Date: 20191223
  Receipt Date: 20191223
  Transmission Date: 20200122
  Serious: Yes (Hospitalization, Other)
  Sender: FDA-Public Use
  Company Number: MX-ELI_LILLY_AND_COMPANY-MX201912010234

PATIENT
  Sex: Male

DRUGS (2)
  1. CYMBALTA [Suspect]
     Active Substance: DULOXETINE HYDROCHLORIDE
     Indication: HYPOAESTHESIA
  2. CYMBALTA [Suspect]
     Active Substance: DULOXETINE HYDROCHLORIDE
     Indication: POOR PERIPHERAL CIRCULATION
     Dosage: UNK, UNKNOWN
     Route: 065

REACTIONS (14)
  - Blood cholesterol abnormal [Unknown]
  - Dislocation of vertebra [Unknown]
  - Sleep disorder due to general medical condition, insomnia type [Unknown]
  - Stress [Unknown]
  - Intervertebral disc protrusion [Unknown]
  - Spinal pain [Unknown]
  - Joint injury [Unknown]
  - Diabetes mellitus [Unknown]
  - Prostatic disorder [Unknown]
  - Weight decreased [Recovering/Resolving]
  - Decreased appetite [Unknown]
  - Gait inability [Unknown]
  - Dental caries [Unknown]
  - Blood triglycerides abnormal [Unknown]

NARRATIVE: CASE EVENT DATE: 201809
